FAERS Safety Report 6440165-3 (Version None)
Quarter: 2009Q4

REPORT INFORMATION
  Report Type: 
  Country: None (occurrence: None)
  Receive Date: 20091113
  Receipt Date: 20090515
  Transmission Date: 20100525
  Serious: No
  Sender: FDA-Public Use
  Company Number: A0784605A

PATIENT
  Age: 44 Year
  Sex: Female

DRUGS (3)
  1. COREG [Suspect]
     Dosage: 12.5MG TWICE PER DAY
     Route: 048
     Dates: start: 19990101, end: 20070101
  2. LOTENSIN [Concomitant]
  3. NORVASC [Concomitant]

REACTIONS (3)
  - MALAISE [None]
  - SOMNOLENCE [None]
  - WEIGHT DECREASED [None]
